FAERS Safety Report 14798538 (Version 11)
Quarter: 2019Q2

REPORT INFORMATION
  Report Type: Report from Study
  Country: US (occurrence: US)
  Receive Date: 20180424
  Receipt Date: 20190606
  Transmission Date: 20190711
  Serious: Yes (Other)
  Sender: FDA-Public Use
  Company Number: US-TESARO, INC.-US-2018TSO01400

PATIENT
  Age: 65 Year
  Sex: Female

DRUGS (6)
  1. ZEJULA [Suspect]
     Active Substance: NIRAPARIB
     Dosage: 100 MG
     Dates: start: 20190220, end: 20190226
  2. ZEJULA [Suspect]
     Active Substance: NIRAPARIB
     Indication: ENDOMETRIAL CANCER
     Dosage: 100 MG, QPM
     Route: 048
     Dates: start: 20180628, end: 20190110
  3. WARFARIN [Concomitant]
     Active Substance: WARFARIN
     Indication: PRODUCT USED FOR UNKNOWN INDICATION
  4. ZEJULA [Suspect]
     Active Substance: NIRAPARIB
     Indication: UTERINE CANCER
     Dosage: 100 MG, QD
     Route: 048
     Dates: start: 20180301, end: 20180423
  5. ZEJULA [Suspect]
     Active Substance: NIRAPARIB
     Dosage: 200 MG, HS
     Dates: start: 20190227
  6. METFORMIN [Concomitant]
     Active Substance: METFORMIN HYDROCHLORIDE
     Indication: PRODUCT USED FOR UNKNOWN INDICATION

REACTIONS (25)
  - Product use in unapproved indication [Unknown]
  - Bowel movement irregularity [Unknown]
  - International normalised ratio increased [Not Recovered/Not Resolved]
  - Pruritus [Recovered/Resolved]
  - Insomnia [Not Recovered/Not Resolved]
  - Pericardial effusion [Not Recovered/Not Resolved]
  - Dehydration [Not Recovered/Not Resolved]
  - Hypersensitivity [Unknown]
  - Oropharyngeal pain [Unknown]
  - Presyncope [Unknown]
  - Viral infection [Unknown]
  - Disease progression [Not Recovered/Not Resolved]
  - Pericarditis [Unknown]
  - Sleep disorder [Not Recovered/Not Resolved]
  - Chest pain [Unknown]
  - Night sweats [Not Recovered/Not Resolved]
  - Dry mouth [Unknown]
  - Abdominal pain [Unknown]
  - Blood glucose increased [Not Recovered/Not Resolved]
  - Cardiac disorder [Not Recovered/Not Resolved]
  - Constipation [Not Recovered/Not Resolved]
  - Infection in an immunocompromised host [Unknown]
  - Abdominal mass [Recovered/Resolved]
  - Abdominal distension [Unknown]
  - Nausea [Not Recovered/Not Resolved]

NARRATIVE: CASE EVENT DATE: 2018
